FAERS Safety Report 9444918 (Version 2)
Quarter: 2013Q3

REPORT INFORMATION
  Report Type: Spontaneous
  Country: IT (occurrence: IT)
  Receive Date: 20130807
  Receipt Date: 20130814
  Transmission Date: 20140515
  Serious: Yes (Hospitalization, Other)
  Sender: FDA-Public Use
  Company Number: PHHY2013IT081844

PATIENT
  Age: 81 Year
  Sex: Female

DRUGS (2)
  1. CICLOSPORIN [Suspect]
     Indication: PSORIASIS
  2. SIMVASTATIN [Interacting]

REACTIONS (4)
  - Renal failure chronic [Unknown]
  - Rhabdomyolysis [Unknown]
  - Asthenia [Unknown]
  - Drug interaction [Unknown]
